FAERS Safety Report 5927254-4 (Version None)
Quarter: 2008Q4

REPORT INFORMATION
  Report Type: 
  Country: None (occurrence: None)
  Receive Date: 20081022
  Receipt Date: 20081014
  Transmission Date: 20090506
  Serious: Yes (Hospitalization)
  Sender: FDA-Public Use
  Company Number: FR-PFIZER INC-2008087014

PATIENT
  Sex: Male

DRUGS (10)
  1. IRINOTECAN HCL [Suspect]
     Dosage: DAILY DOSE:350MG
     Route: 042
     Dates: start: 20080610, end: 20080610
  2. FLUOROURACIL [Suspect]
     Dosage: TEXT:780 MG/ BOLUS
     Route: 042
     Dates: start: 20080610, end: 20080610
  3. FLUOROURACIL [Suspect]
     Dosage: DAILY DOSE:4700MG
     Route: 042
     Dates: start: 20080610, end: 20080610
  4. CETUXIMAB [Suspect]
     Dosage: DAILY DOSE:980MG
     Route: 042
     Dates: start: 20080610, end: 20080610
  5. LEUCOVORIN CALCIUM [Suspect]
     Dosage: DAILY DOSE:390MG
     Route: 042
     Dates: start: 20080610, end: 20080610
  6. VERAPAMIL [Concomitant]
  7. PRAVASTATIN [Concomitant]
  8. DEXTROPROPOXYPHENE/ PARACETAMOL [Concomitant]
  9. ALLOPURINOL [Concomitant]
  10. DOXYCYCLINE MONOHYDRATE [Concomitant]
     Indication: RASH

REACTIONS (1)
  - CONVULSION [None]
